FAERS Safety Report 4307179-0 (Version None)
Quarter: 2004Q1

REPORT INFORMATION
  Report Type: 
  Country: None (occurrence: None)
  Receive Date: 20040225
  Receipt Date: 20040210
  Transmission Date: 20041129
  Serious: No
  Sender: FDA-Public Use
  Company Number: PHRM2004FR00853

PATIENT
  Age: 50 Year
  Sex: Male

DRUGS (1)
  1. LIORESAL [Suspect]
     Indication: MUSCLE SPASTICITY
     Dosage: 50 UG, ONCE/SINGLE
     Route: 037
     Dates: start: 20040201

REACTIONS (5)
  - HEADACHE [None]
  - HYPERHIDROSIS [None]
  - HYPOTENSION [None]
  - ILEUS PARALYTIC [None]
  - URINARY RETENTION [None]
